FAERS Safety Report 10011629 (Version 1)
Quarter: 2014Q1

REPORT INFORMATION
  Report Type: Spontaneous
  Country: US (occurrence: US)
  Receive Date: 20140314
  Receipt Date: 20140314
  Transmission Date: 20141002
  Serious: No
  Sender: FDA-Public Use
  Company Number: US-BAYER-2014-038477

PATIENT
  Sex: Female

DRUGS (1)
  1. MIRENA [Suspect]
     Dosage: 20 ?G/D, CONT
     Route: 015
     Dates: start: 200901

REACTIONS (5)
  - Abdominal pain lower [None]
  - Amenorrhoea [None]
  - Pain [None]
  - Dyspareunia [None]
  - Incorrect drug administration duration [None]
